FAERS Safety Report 11897844 (Version 1)
Quarter: 2016Q1

REPORT INFORMATION
  Report Type: Spontaneous
  Country: US (occurrence: US)
  Receive Date: 20160108
  Receipt Date: 20160108
  Transmission Date: 20160526
  Serious: Yes (Life-Threatening, Hospitalization)
  Sender: FDA-Public Use
  Company Number: US-HOSPIRA-3132345

PATIENT
  Age: 51 Year
  Sex: Male

DRUGS (5)
  1. HEPARIN SODIUM. [Suspect]
     Active Substance: HEPARIN SODIUM
     Indication: ANGIOGRAM CEREBRAL
     Dosage: TOTAL OF 8 DOSES OF 5000 UNITS OVER 3 DAYS
     Route: 013
  2. HEPARIN SODIUM. [Suspect]
     Active Substance: HEPARIN SODIUM
     Indication: DEEP VEIN THROMBOSIS
     Dosage: TOTAL OF 8 DOSES OF 5000 UNITS OVER 3 DAYS
     Route: 058
  3. HEPARIN SODIUM. [Suspect]
     Active Substance: HEPARIN SODIUM
     Indication: DEEP VEIN THROMBOSIS
     Route: 058
  4. HEPARIN SODIUM. [Suspect]
     Active Substance: HEPARIN SODIUM
     Indication: DEEP VEIN THROMBOSIS
     Route: 041
  5. HEPARIN SODIUM. [Suspect]
     Active Substance: HEPARIN SODIUM
     Indication: PROPHYLAXIS
     Dosage: TOTAL OF 8 DOSES OF 5000 UNITS OVER 3 DAYS
     Route: 058

REACTIONS (3)
  - Disseminated intravascular coagulation [Recovering/Resolving]
  - Heparin-induced thrombocytopenia [Recovering/Resolving]
  - Cerebral haemorrhage [Recovering/Resolving]
